FAERS Safety Report 17460558 (Version 1)
Quarter: 2020Q1

REPORT INFORMATION
  Report Type: Spontaneous
  Country: US (occurrence: US)
  Receive Date: 20200225
  Receipt Date: 20200225
  Transmission Date: 20200409
  Serious: Yes (Death)
  Sender: FDA-Public Use
  Company Number: US-ROCHE-2556545

PATIENT
  Age: 59 Year
  Sex: Male

DRUGS (1)
  1. COTELLIC [Suspect]
     Active Substance: COBIMETINIB
     Indication: MALIGNANT MELANOMA
     Dosage: DAILY FOR 21 DAYS BY MOUTH
     Route: 048
     Dates: start: 20190911

REACTIONS (1)
  - Death [Fatal]

NARRATIVE: CASE EVENT DATE: 20200214
